FAERS Safety Report 23484938 (Version 1)
Quarter: 2024Q1

REPORT INFORMATION
  Report Type: Report from Study
  Country: GB (occurrence: GB)
  Receive Date: 20240206
  Receipt Date: 20240206
  Transmission Date: 20240410
  Serious: Yes (Other)
  Sender: FDA-Public Use
  Company Number: GB-SANDOZ-SDZ2023GB006586

PATIENT
  Sex: Male

DRUGS (5)
  1. HYRIMOZ [Suspect]
     Active Substance: ADALIMUMAB-ADAZ
     Indication: Crohn^s disease
     Dosage: 160 MG WEEK 0
     Route: 058
     Dates: start: 20230518
  2. HYRIMOZ [Suspect]
     Active Substance: ADALIMUMAB-ADAZ
     Dosage: 40 MG, EOW
     Route: 058
     Dates: start: 20230531
  3. HYRIMOZ [Suspect]
     Active Substance: ADALIMUMAB-ADAZ
     Dosage: 40 MG, Q2W
     Route: 058
     Dates: start: 20230802
  4. HYRIMOZ [Suspect]
     Active Substance: ADALIMUMAB-ADAZ
     Dosage: 40 MG, WEEK 4
     Route: 058
     Dates: start: 20230531
  5. HYRIMOZ [Suspect]
     Active Substance: ADALIMUMAB-ADAZ
     Dosage: 80 MG, WEEK 2
     Route: 058
     Dates: start: 20230518

REACTIONS (5)
  - Nephrolithiasis [Unknown]
  - Crohn^s disease [Unknown]
  - Headache [Unknown]
  - Immunoglobulins increased [Unknown]
  - Fatigue [Unknown]
